FAERS Safety Report 20460439 (Version 1)
Quarter: 2022Q1

REPORT INFORMATION
  Report Type: Spontaneous
  Country: US (occurrence: US)
  Receive Date: 20220211
  Receipt Date: 20220211
  Transmission Date: 20220423
  Serious: No
  Sender: FDA-Public Use
  Company Number: US-GSKCCFUS-Case-01291981_AE-75319

PATIENT
  Sex: Male

DRUGS (1)
  1. LAMICTAL [Suspect]
     Active Substance: LAMOTRIGINE
     Indication: Epilepsy
     Dosage: 2 DF, QD,.25MG TABLETS TAKE 2 TABLETS BY MOUTH AT BEDTIME
     Route: 048
     Dates: start: 20211129

REACTIONS (2)
  - Dermatitis allergic [Unknown]
  - Rash [Unknown]
